FAERS Safety Report 4348393-8 (Version None)
Quarter: 2004Q2

REPORT INFORMATION
  Report Type: 
  Country: None (occurrence: None)
  Receive Date: 20040427
  Receipt Date: 20030224
  Transmission Date: 20050107
  Serious: Yes (Death, Life-Threatening, Hospitalization)
  Sender: FDA-Public Use
  Company Number: US-BRISTOL-MYERS SQUIBB COMPANY-12193017

PATIENT
  Age: 76 Year
  Sex: Male
  Weight: 70 kg

DRUGS (7)
  1. CARBOPLATIN [Suspect]
     Indication: NON-SMALL CELL LUNG CANCER
     Dosage: AUC 6
     Route: 042
     Dates: start: 20030107, end: 20030206
  2. TAXOL [Suspect]
     Indication: NON-SMALL CELL LUNG CANCER
     Dosage: 100 MG/M2
     Route: 042
     Dates: start: 20030107, end: 20030213
  3. DEXAMETHASONE [Concomitant]
     Indication: NON-SMALL CELL LUNG CANCER
     Dates: start: 20030107
  4. DIPHENHYDRAMINE HCL [Concomitant]
     Indication: NON-SMALL CELL LUNG CANCER
     Dates: start: 20030107
  5. CIMETIDINE HCL [Concomitant]
     Indication: NON-SMALL CELL LUNG CANCER
     Dates: start: 20030107
  6. ADVAIR DISKUS 100/50 [Concomitant]
     Indication: CHRONIC OBSTRUCTIVE AIRWAYS DISEASE
     Dosage: 250/50- 2 PUFFS TWICE DAILY
     Route: 055
  7. KYTRIL [Concomitant]
     Indication: NAUSEA
     Dates: start: 20030107

REACTIONS (11)
  - ASPARTATE AMINOTRANSFERASE INCREASED [None]
  - BLOOD BILIRUBIN INCREASED [None]
  - CIRCULATORY COLLAPSE [None]
  - DEHYDRATION [None]
  - HYPOTENSION [None]
  - NEUTROPENIA [None]
  - NON-SMALL CELL LUNG CANCER [None]
  - PLATELET COUNT DECREASED [None]
  - PNEUMONIA [None]
  - SEPSIS [None]
  - TROPONIN INCREASED [None]
